FAERS Safety Report 7205029-6 (Version None)
Quarter: 2010Q4

REPORT INFORMATION
  Report Type: 
  Country: None (occurrence: None)
  Receive Date: 20101230
  Receipt Date: 20101228
  Transmission Date: 20110411
  Serious: Yes (Life-Threatening, Hospitalization, Disabling, Other)
  Sender: FDA-Public Use
  Company Number: US-B.I. PHARMACEUTICALS,INC./RIDGEFIELD-2010-BP-15287BP

PATIENT
  Sex: Female

DRUGS (8)
  1. SPIRIVA [Suspect]
     Indication: DYSPNOEA
     Dosage: 18 MCG
     Route: 055
     Dates: start: 20060101
  2. SYMBICORT [Concomitant]
     Indication: DYSPNOEA
     Route: 055
  3. ASPIRIN [Concomitant]
     Indication: ROUTINE HEALTH MAINTENANCE
     Dosage: 81 MG
     Route: 048
  4. VITAMIN-MINERAL COMPOUND TAB [Concomitant]
     Indication: DRY EYE
  5. OSCAL [Concomitant]
     Indication: SUPPLEMENTATION THERAPY
  6. RESTASIS [Concomitant]
     Indication: DRY EYE
  7. REFRESH [Concomitant]
     Indication: DRY EYE
  8. XANAX [Concomitant]
     Indication: ANXIETY
     Dosage: 1 MG

REACTIONS (5)
  - ABASIA [None]
  - BRAIN NEOPLASM [None]
  - CARDIAC ARREST [None]
  - DYSPNOEA [None]
  - WALKING AID USER [None]
